FAERS Safety Report 23673123 (Version 1)
Quarter: 2024Q1

REPORT INFORMATION
  Report Type: Spontaneous
  Country: US (occurrence: None)
  Receive Date: 20240325
  Receipt Date: 20240325
  Transmission Date: 20240410
  Serious: Yes (Hospitalization)
  Sender: FDA-Public Use
  Company Number: None

PATIENT
  Age: 82 Year
  Sex: Male
  Weight: 81.45 kg

DRUGS (2)
  1. IXEKIZUMAB [Suspect]
     Active Substance: IXEKIZUMAB
     Indication: Psoriasis
     Dosage: OTHER FREQUENCY : EVERY 4 WEEKS;?
     Dates: end: 20240313
  2. SEMAGLUTIDE [Concomitant]
     Active Substance: SEMAGLUTIDE
     Dates: start: 20201020

REACTIONS (3)
  - Prostatic abscess [None]
  - Escherichia bacteraemia [None]
  - Herpes simplex [None]

NARRATIVE: CASE EVENT DATE: 20240313
